FAERS Safety Report 9908585 (Version 1)
Quarter: 2014Q1

REPORT INFORMATION
  Report Type: Spontaneous
  Country: US (occurrence: None)
  Receive Date: 20140211
  Receipt Date: 20140211
  Transmission Date: 20141002
  Serious: Yes (Other)
  Sender: FDA-Public Use
  Company Number: 2014P1000876

PATIENT
  Age: 38 Year
  Sex: 0

DRUGS (4)
  1. MITOMYCIN [Suspect]
     Indication: BLADDER CANCER
     Route: 043
  2. PHENAZOPYRIDINE [Concomitant]
  3. OXYBUTYNIN [Concomitant]
  4. HYDROCODONE [Concomitant]

REACTIONS (4)
  - Dysuria [None]
  - Eosinophilic cystitis [None]
  - Post procedural complication [None]
  - Eschar [None]
